FAERS Safety Report 8870168 (Version 1)
Quarter: 2012Q4

REPORT INFORMATION
  Report Type: Report from Study
  Country: US (occurrence: US)
  Receive Date: 20121027
  Receipt Date: 20121027
  Transmission Date: 20130627
  Serious: Yes (Other)
  Sender: FDA-Public Use
  Company Number: US-MERCK-1210USA009008

PATIENT
  Age: 69 Year
  Sex: Female
  Weight: 96 kg

DRUGS (7)
  1. SYLATRON [Suspect]
     Indication: MALIGNANT MELANOMA
     Dosage: 2 Microgram per kilogram, qw
     Route: 058
     Dates: start: 20121009, end: 20121009
  2. YERVOY [Suspect]
     Indication: MALIGNANT MELANOMA
     Dosage: 3 mg/kg, q3w
     Route: 042
     Dates: start: 20121009, end: 20121009
  3. LEVEMIR [Concomitant]
  4. ATENOLOL [Concomitant]
  5. LYRICA [Concomitant]
  6. GLIMEPRID [Concomitant]
  7. JANUMET [Concomitant]

REACTIONS (1)
  - Vision blurred [Recovered/Resolved]
